FAERS Safety Report 5684978-4 (Version None)
Quarter: 2008Q1

REPORT INFORMATION
  Report Type: 
  Country: None (occurrence: None)
  Receive Date: 20080328
  Receipt Date: 19960425
  Transmission Date: 20080703
  Serious: Yes (Death)
  Sender: FDA-Public Use
  Company Number: IL-ROCHE-62009

PATIENT
  Age: 19 Year
  Sex: Male
  Weight: 75 kg

DRUGS (3)
  1. ROACCUTANE [Suspect]
     Indication: ACNE
     Route: 048
     Dates: start: 19951224
  2. LAMICTAL [Concomitant]
     Indication: EPILEPSY
     Route: 048
     Dates: start: 19951001
  3. PRIMIDONE [Concomitant]
     Route: 048

REACTIONS (2)
  - DEATH [None]
  - HYPOGLYCAEMIA [None]
